FAERS Safety Report 4892584-4 (Version None)
Quarter: 2006Q1

REPORT INFORMATION
  Report Type: 
  Country: None (occurrence: None)
  Receive Date: 20060124
  Receipt Date: 20060116
  Transmission Date: 20060701
  Serious: Yes (Hospitalization)
  Sender: FDA-Public Use
  Company Number: FRP06000117

PATIENT
  Age: 80 Year
  Sex: Female

DRUGS (4)
  1. ACTONEL [Suspect]
     Indication: OSTEOPOROSIS
     Dosage: ORAL
     Route: 048
  2. TORENTAL (PENTOXIFYLLINE) [Suspect]
     Dosage: ORAL
     Route: 048
  3. FENOFIBRATE [Suspect]
     Indication: LIPID METABOLISM DISORDER
     Dosage: ORAL
     Route: 048
  4. HEXAQUINE (MELALEUCA VIRIDIFLORA OIL, THIAMINE HYDROCHLORIDE, QUININE [Suspect]
     Dosage: ORAL
     Route: 048

REACTIONS (2)
  - CREATININE RENAL CLEARANCE DECREASED [None]
  - CYTOLYTIC HEPATITIS [None]
